FAERS Safety Report 7446566-9 (Version None)
Quarter: 2011Q2

REPORT INFORMATION
  Report Type: 
  Country: None (occurrence: None)
  Receive Date: 20110429
  Receipt Date: 20110418
  Transmission Date: 20111010
  Serious: Yes (Hospitalization, Other)
  Sender: FDA-Public Use
  Company Number: US-MERCK-1101USA01421

PATIENT
  Age: 64 Year
  Sex: Male

DRUGS (8)
  1. ALENDRONATE SODIUM [Suspect]
     Route: 048
     Dates: start: 20080305
  2. FOSAMAX [Suspect]
     Route: 048
     Dates: start: 19970716
  3. PREDNISONE [Concomitant]
     Indication: ARTHRITIS
     Route: 065
     Dates: start: 19850101
  4. LEVOTHYROXINE SODIUM [Concomitant]
     Indication: THYROID DISORDER
     Route: 065
  5. ALENDRONATE SODIUM [Suspect]
     Indication: OSTEOPOROSIS
     Route: 048
     Dates: start: 20080207
  6. FOSAMAX [Suspect]
     Indication: OSTEOPOROSIS
     Route: 048
     Dates: start: 19970311, end: 20000601
  7. FOSAMAX [Suspect]
     Route: 048
     Dates: end: 20090401
  8. FELDENE [Concomitant]
     Indication: ARTHRITIS
     Route: 065
     Dates: start: 19850101

REACTIONS (70)
  - SLEEP APNOEA SYNDROME [None]
  - ADVERSE DRUG REACTION [None]
  - EXOSTOSIS [None]
  - CHEST PAIN [None]
  - HYPERTENSION [None]
  - GLAUCOMA [None]
  - HYPOAESTHESIA [None]
  - SCOLIOSIS [None]
  - INFLUENZA [None]
  - BRONCHITIS [None]
  - OSTEONECROSIS OF JAW [None]
  - ERECTILE DYSFUNCTION [None]
  - CONFUSIONAL STATE [None]
  - HEAD INJURY [None]
  - GINGIVAL DISORDER [None]
  - GINGIVAL BLEEDING [None]
  - GAIT DISTURBANCE [None]
  - SYNCOPE [None]
  - SPONDYLITIC MYELOPATHY [None]
  - INTESTINAL FUNCTIONAL DISORDER [None]
  - CATARACT [None]
  - PERICARDITIS [None]
  - DENTAL CARIES [None]
  - COLONIC POLYP [None]
  - GINGIVAL INFECTION [None]
  - URINARY INCONTINENCE [None]
  - BRONCHIAL HYPERREACTIVITY [None]
  - NECK PAIN [None]
  - MYALGIA [None]
  - MEMORY IMPAIRMENT [None]
  - INFECTION [None]
  - ECCHYMOSIS [None]
  - LUMBAR SPINAL STENOSIS [None]
  - CARPAL TUNNEL SYNDROME [None]
  - DIARRHOEA [None]
  - BURSITIS [None]
  - MICTURITION URGENCY [None]
  - HEPATIC STEATOSIS [None]
  - ANAEMIA [None]
  - PROSTATE CANCER [None]
  - CHANGE OF BOWEL HABIT [None]
  - BLOOD CHOLESTEROL INCREASED [None]
  - GROIN PAIN [None]
  - HAEMATURIA [None]
  - INFLUENZA LIKE ILLNESS [None]
  - BONE DENSITY DECREASED [None]
  - ASPIRATION [None]
  - OPTIC ATROPHY [None]
  - BACK DISORDER [None]
  - DIVERTICULUM [None]
  - CORNEAL DISORDER [None]
  - HYPERLIPIDAEMIA [None]
  - RASH PRURITIC [None]
  - POLYP COLORECTAL [None]
  - PENIS DISORDER [None]
  - ROSACEA [None]
  - RHEUMATOID ARTHRITIS [None]
  - INTERVERTEBRAL DISC DEGENERATION [None]
  - CHOKING [None]
  - ABDOMINAL DISTENSION [None]
  - SPINAL OSTEOARTHRITIS [None]
  - INSOMNIA [None]
  - TRIGGER FINGER [None]
  - SPINAL COLUMN STENOSIS [None]
  - RESTLESS LEGS SYNDROME [None]
  - PRURITUS ALLERGIC [None]
  - ARTHRALGIA [None]
  - MUSCULAR WEAKNESS [None]
  - ARTHROPATHY [None]
  - DRY MOUTH [None]
